FAERS Safety Report 11436011 (Version 1)
Quarter: 2015Q3

REPORT INFORMATION
  Report Type: Spontaneous
  Country: US (occurrence: US)
  Receive Date: 20150831
  Receipt Date: 20150831
  Transmission Date: 20151125
  Serious: Yes (Other)
  Sender: FDA-Public Use
  Company Number: US-PFIZER INC-2015276885

PATIENT
  Age: 53 Year
  Sex: Male
  Weight: 91 kg

DRUGS (9)
  1. LIPITOR [Concomitant]
     Active Substance: ATORVASTATIN CALCIUM
     Indication: BLOOD CHOLESTEROL INCREASED
     Dosage: 10 MG, UNK
  2. ADVIL [Interacting]
     Active Substance: IBUPROFEN
     Indication: TENDONITIS
     Dosage: 400 MG, 2X/DAY
     Route: 048
     Dates: start: 201507, end: 201508
  3. ADVIL [Interacting]
     Active Substance: IBUPROFEN
     Indication: ARTHRALGIA
  4. OMEPRAZOLE. [Concomitant]
     Active Substance: OMEPRAZOLE
     Indication: HYPERCHLORHYDRIA
     Dosage: 40 MG, UNK
  5. VENLAFAXINE [Concomitant]
     Active Substance: VENLAFAXINE HYDROCHLORIDE
     Indication: PANIC ATTACK
  6. XANAX [Concomitant]
     Active Substance: ALPRAZOLAM
     Indication: PANIC ATTACK
     Dosage: 1 MG, UNK
     Dates: start: 1996
  7. ASPIRIN. [Suspect]
     Active Substance: ASPIRIN
     Indication: BLOOD PRESSURE ABNORMAL
     Dosage: 81 MG, DAILY
     Dates: start: 2000
  8. LEVOTHYROXINE. [Concomitant]
     Active Substance: LEVOTHYROXINE
     Indication: HYPOTHYROIDISM
     Dosage: 125 ?G, UNK
  9. ADVIL [Interacting]
     Active Substance: IBUPROFEN
     Indication: MUSCULOSKELETAL DISCOMFORT

REACTIONS (4)
  - Blood pressure increased [Unknown]
  - Drug interaction [Unknown]
  - Product use issue [Unknown]
  - Fluid retention [Unknown]

NARRATIVE: CASE EVENT DATE: 2000
